FAERS Safety Report 9527072 (Version 5)
Quarter: 2016Q3

REPORT INFORMATION
  Report Type: Spontaneous
  Country: US (occurrence: US)
  Receive Date: 20130916
  Receipt Date: 20160801
  Transmission Date: 20161109
  Serious: Yes (Hospitalization, Other)
  Sender: FDA-Public Use
  Company Number: US-009507513-1309USA006818

PATIENT
  Sex: Female

DRUGS (4)
  1. FOSAMAX [Suspect]
     Active Substance: ALENDRONATE SODIUM
     Indication: OSTEOPENIA
     Dosage: 70 MG, UNKNOWN
     Route: 048
     Dates: end: 20110314
  2. ALENDRONATE SODIUM. [Suspect]
     Active Substance: ALENDRONATE SODIUM
     Indication: OSTEOPENIA
     Dosage: 70 MG, UNKNOWN
     Route: 048
  3. VITAMIN D [Concomitant]
     Active Substance: CHOLECALCIFEROL
     Indication: OSTEOPENIA
     Dosage: UNK, UNKNOWN
     Route: 065
  4. CALCIUM (UNSPECIFIED) [Concomitant]
     Active Substance: CALCIUM
     Indication: OSTEOPENIA
     Dosage: 1500 MG, QD
     Route: 065
     Dates: start: 2000

REACTIONS (21)
  - Femur fracture [Unknown]
  - Lumbar spinal stenosis [Unknown]
  - Upper limb fracture [Unknown]
  - Hypophosphataemia [Unknown]
  - Coronary arterial stent insertion [Unknown]
  - Chest pain [Unknown]
  - Atypical femur fracture [Unknown]
  - Hypertensive nephropathy [Unknown]
  - Intramedullary rod insertion [Unknown]
  - Osteoarthritis [Unknown]
  - Coronary artery disease [Unknown]
  - Diabetic neuropathy [Unknown]
  - Joint dislocation reduction [Unknown]
  - Abdominal pain [Unknown]
  - Asthenia [Unknown]
  - Foot fracture [Unknown]
  - Type 2 diabetes mellitus [Unknown]
  - Low turnover osteopathy [Unknown]
  - Joint dislocation [Unknown]
  - Anaemia postoperative [Unknown]
  - Diarrhoea [Unknown]

NARRATIVE: CASE EVENT DATE: 2000
